FAERS Safety Report 9341133 (Version 1)
Quarter: 2013Q2

REPORT INFORMATION
  Report Type: Spontaneous
  Country: US (occurrence: US)
  Receive Date: 20130611
  Receipt Date: 20130611
  Transmission Date: 20140414
  Serious: No
  Sender: FDA-Public Use
  Company Number: US-009507513-1306USA002452

PATIENT
  Age: 53 Year
  Sex: Male

DRUGS (7)
  1. JANUVIA [Suspect]
     Indication: DIABETES MELLITUS
     Dosage: 100 MG, QD
     Route: 048
     Dates: start: 20130515, end: 20130604
  2. GLYBURIDE (+) METFORMIN HYDROCHLORIDE [Concomitant]
     Dosage: 2.5-500 MG, BID
  3. ATORVASTATIN [Concomitant]
     Dosage: 20 MG, QD
  4. LEVEMIR [Concomitant]
     Dosage: 50 DF, QD
  5. LOSARTAN POTASSIUM [Concomitant]
     Dosage: 50 MG, QD
  6. PRILOSEC [Concomitant]
     Dosage: 40 MG, QD
  7. ASPIRIN [Concomitant]
     Dosage: UNK, QD

REACTIONS (1)
  - Nasal congestion [Not Recovered/Not Resolved]
